FAERS Safety Report 18567688 (Version 4)
Quarter: 2020Q4

REPORT INFORMATION
  Report Type: Spontaneous
  Country: US (occurrence: US)
  Receive Date: 20201202
  Receipt Date: 20201224
  Transmission Date: 20210114
  Serious: No
  Sender: FDA-Public Use
  Company Number: US-JNJFOC-20201133192

PATIENT
  Age: 60 Year
  Sex: Female
  Weight: 63.11 kg

DRUGS (2)
  1. STELARA [Suspect]
     Active Substance: USTEKINUMAB
  2. STELARA [Suspect]
     Active Substance: USTEKINUMAB
     Indication: PRODUCT USED FOR UNKNOWN INDICATION
     Route: 058
     Dates: start: 20201026

REACTIONS (3)
  - Device malfunction [Unknown]
  - Underdose [Unknown]
  - Self-medication [Unknown]

NARRATIVE: CASE EVENT DATE: 20201026
